FAERS Safety Report 7576230-7 (Version None)
Quarter: 2011Q2

REPORT INFORMATION
  Report Type: 
  Country: None (occurrence: None)
  Receive Date: 20110628
  Receipt Date: 20110516
  Transmission Date: 20111010
  Serious: Yes (Other)
  Sender: FDA-Public Use
  Company Number: US-BAYER-201031307NA

PATIENT
  Age: 24 Year
  Sex: Female
  Weight: 90.703 kg

DRUGS (17)
  1. PREVACID [Concomitant]
     Indication: GASTROOESOPHAGEAL REFLUX DISEASE
     Dosage: 30 MG, UNK
  2. PHENERGAN HCL [Concomitant]
     Indication: NAUSEA
     Dosage: 25 MG, QID
     Dates: start: 20030702
  3. VITAMIN TAB [Concomitant]
  4. PROZAC [Concomitant]
     Indication: DEPRESSION
  5. LORTAB [Concomitant]
  6. PERCOCET [Concomitant]
     Indication: PAIN
     Dosage: UNK
     Dates: start: 20030721
  7. ZANTAC [Concomitant]
  8. DIET MEDICATION [Concomitant]
  9. LEXAPRO [Concomitant]
  10. SEPTRA DS [Concomitant]
     Indication: GASTROENTERITIS
     Dosage: UNK UNK, BID
     Route: 048
     Dates: start: 20030702
  11. YASMIN [Suspect]
     Indication: CONTRACEPTION
     Dosage: UNK
     Route: 048
     Dates: start: 20000101, end: 20080101
  12. KAOPECTATE [Concomitant]
     Indication: DIARRHOEA HAEMORRHAGIC
     Dosage: UNK
     Route: 048
     Dates: start: 20030702
  13. ESTROGENIC SUBSTANCE [Concomitant]
  14. PHENERGAN HCL [Concomitant]
     Indication: VOMITING
     Dosage: 25 MG, QID
     Route: 054
  15. BENTYL [Concomitant]
     Dosage: 25 MG, TID
     Dates: start: 20030702
  16. CIPROFLOXACIN HCL [Concomitant]
     Indication: GASTROENTERITIS SALMONELLA
     Dosage: 500 MG, BID
     Route: 048
     Dates: start: 20030708, end: 20030715
  17. PHENTERMINE [Concomitant]

REACTIONS (5)
  - BILIARY COLIC [None]
  - CHOLECYSTITIS CHRONIC [None]
  - BILIARY DYSKINESIA [None]
  - GALLBLADDER DISORDER [None]
  - INJURY [None]
